FAERS Safety Report 9768266 (Version 2)
Quarter: 2014Q1

REPORT INFORMATION
  Report Type: Spontaneous
  Country: US (occurrence: US)
  Receive Date: 20131217
  Receipt Date: 20140117
  Transmission Date: 20141002
  Serious: No
  Sender: FDA-Public Use
  Company Number: US-JNJFOC-20131201285

PATIENT
  Sex: Male

DRUGS (1)
  1. DURAGESIC [Suspect]
     Indication: PRODUCT USED FOR UNKNOWN INDICATION
     Route: 062

REACTIONS (6)
  - Drug effect decreased [Unknown]
  - Drug ineffective [Unknown]
  - Pain [Unknown]
  - Poor quality drug administered [Unknown]
  - Product quality issue [Unknown]
  - Product odour abnormal [Unknown]
